FAERS Safety Report 22214505 (Version 1)
Quarter: 2023Q2

REPORT INFORMATION
  Report Type: Spontaneous
  Country: US (occurrence: None)
  Receive Date: 20230414
  Receipt Date: 20230414
  Transmission Date: 20230722
  Serious: No
  Sender: FDA-Public Use
  Company Number: 2023A084262

PATIENT
  Age: 71 Year
  Sex: Male
  Weight: 104.3 kg

DRUGS (1)
  1. BYDUREON BCISE [Suspect]
     Active Substance: EXENATIDE
     Route: 058
     Dates: start: 2022

REACTIONS (6)
  - Injection site injury [Unknown]
  - Glycosylated haemoglobin decreased [Unknown]
  - Incorrect dose administered by device [Recovered/Resolved]
  - Wrong technique in device usage process [Unknown]
  - Device use issue [Recovered/Resolved]
  - Liquid product physical issue [Recovered/Resolved]

NARRATIVE: CASE EVENT DATE: 20230403
